FAERS Safety Report 4350930-4 (Version None)
Quarter: 2004Q2

REPORT INFORMATION
  Report Type: 
  Country: None (occurrence: None)
  Receive Date: 20040430
  Receipt Date: 20040209
  Transmission Date: 20050107
  Serious: Yes (Death, Life-Threatening)
  Sender: FDA-Public Use
  Company Number: FR-GLAXOSMITHKLINE-B0322606A

PATIENT
  Age: 75 Year
  Sex: Male
  Weight: 63 kg

DRUGS (2)
  1. AUGMENTIN [Suspect]
     Dosage: 2G PER DAY
     Route: 042
     Dates: start: 20040109, end: 20040116
  2. ACETAMINOPHEN [Suspect]
     Dosage: 1G SEE DOSAGE TEXT
     Route: 042
     Dates: start: 20040109, end: 20040116

REACTIONS (3)
  - AGRANULOCYTOSIS [None]
  - DEATH [None]
  - LEUKOPENIA [None]
